FAERS Safety Report 6369643-2 (Version None)
Quarter: 2009Q3

REPORT INFORMATION
  Report Type: 
  Country: None (occurrence: None)
  Receive Date: 20090917
  Receipt Date: 20090910
  Transmission Date: 20100115
  Serious: Yes (Hospitalization, Other)
  Sender: FDA-Public Use
  Company Number: 2009SP020249

PATIENT
  Age: 58 Year
  Sex: Female

DRUGS (8)
  1. PEG-INTRON [Suspect]
     Indication: HEPATITIS C
     Dates: end: 20090801
  2. PEG-INTRON [Suspect]
     Indication: HEPATITIS C
  3. REBETOL [Suspect]
     Indication: HEPATITIS C
     Dosage: ; PO
     Route: 048
     Dates: end: 20090801
  4. REBETOL [Suspect]
     Indication: HEPATITIS C
     Dosage: ; PO
     Route: 048
  5. PROGRAF [Concomitant]
  6. METHADONE HYDROCHLORIDE [Concomitant]
  7. AMLODIPINE [Concomitant]
  8. WELLBUTRIN [Concomitant]

REACTIONS (20)
  - AGGRESSION [None]
  - BLOOD ELECTROLYTES ABNORMAL [None]
  - BRONCHITIS [None]
  - CONVULSION [None]
  - DELIRIUM [None]
  - DEPRESSED MOOD [None]
  - DISORIENTATION [None]
  - DYSPHAGIA [None]
  - ELECTROENCEPHALOGRAM ABNORMAL [None]
  - HYPERTENSION [None]
  - HYPOKALAEMIA [None]
  - HYPOXIA [None]
  - LETHARGY [None]
  - MEMORY IMPAIRMENT [None]
  - METABOLIC DISORDER [None]
  - PANCYTOPENIA [None]
  - RESPIRATORY FAILURE [None]
  - REVERSIBLE POSTERIOR LEUKOENCEPHALOPATHY SYNDROME [None]
  - STAPHYLOCOCCAL INFECTION [None]
  - VIRAL INFECTION [None]
